FAERS Safety Report 20952197 (Version 1)
Quarter: 2022Q2

REPORT INFORMATION
  Report Type: Report from Study
  Country: ES (occurrence: ES)
  Receive Date: 20220613
  Receipt Date: 20220613
  Transmission Date: 20220721
  Serious: Yes (Other)
  Sender: FDA-Public Use
  Company Number: ES-PFIZER INC-202200725279

PATIENT
  Age: 84 Year
  Sex: Female
  Weight: 65 kg

DRUGS (6)
  1. LETROZOLE [Suspect]
     Active Substance: LETROZOLE
     Indication: Product used for unknown indication
     Dosage: 2.5 MILLIGRAM (2.5 MG)
     Route: 048
     Dates: start: 20180912
  2. PALBOCICLIB [Suspect]
     Active Substance: PALBOCICLIB
     Indication: Product used for unknown indication
     Dosage: 125 MILLIGRAM (125 MG)
     Route: 048
     Dates: start: 20180912, end: 20190711
  3. TAPENTADOL [Concomitant]
     Active Substance: TAPENTADOL
     Indication: Pain
     Dosage: UNK
     Route: 048
     Dates: start: 20180727
  4. LOVASTATIN [Concomitant]
     Active Substance: LOVASTATIN
     Indication: Hypercholesterolaemia
     Dosage: UNK
     Route: 048
     Dates: start: 20111117
  5. CELECOXIB [Concomitant]
     Active Substance: CELECOXIB
     Indication: Spinal stenosis
     Dosage: UNK
     Route: 048
     Dates: start: 20160308
  6. LYRICA [Concomitant]
     Active Substance: PREGABALIN
     Indication: Spinal stenosis
     Dosage: UNK
     Route: 048
     Dates: start: 20130221

REACTIONS (1)
  - Neutropenia [Recovered/Resolved]

NARRATIVE: CASE EVENT DATE: 20190711
